FAERS Safety Report 24047468 (Version 1)
Quarter: 2024Q3

REPORT INFORMATION
  Report Type: Spontaneous
  Country: US (occurrence: US)
  Receive Date: 20240703
  Receipt Date: 20240703
  Transmission Date: 20241016
  Serious: No
  Sender: UROGEN PHARMA
  Company Number: US-UROGEN PHARMA LTD.-2024-UGN-000062

PATIENT

DRUGS (4)
  1. JELMYTO [Suspect]
     Active Substance: MITOMYCIN
     Indication: Transitional cell cancer of the renal pelvis and ureter
     Dosage: UNK INSTILLATION
  2. JELMYTO [Suspect]
     Active Substance: MITOMYCIN
     Dosage: UNK INSTILLATION
  3. JELMYTO [Suspect]
     Active Substance: MITOMYCIN
     Dosage: UNK INSTILLATION
  4. JELMYTO [Suspect]
     Active Substance: MITOMYCIN
     Dosage: UNK INSTILLATION
     Dates: start: 20240510, end: 20240510

REACTIONS (1)
  - Expired product administered [Unknown]

NARRATIVE: CASE EVENT DATE: 20240510
